FAERS Safety Report 24538285 (Version 8)
Quarter: 2025Q3

REPORT INFORMATION
  Report Type: Report from Study
  Country: US (occurrence: US)
  Receive Date: 20241023
  Receipt Date: 20250901
  Transmission Date: 20251021
  Serious: No
  Sender: DECIPHERA PHARMACEUTICALS
  Company Number: US-DECIPHERA PHARMACEUTICALS LLC-2024US000879

PATIENT
  Age: 77 Year
  Sex: Male

DRUGS (4)
  1. QINLOCK [Suspect]
     Active Substance: RIPRETINIB
     Indication: Gastrointestinal stromal tumour
     Dosage: 150 MILLIGRAM, QD
     Route: 048
     Dates: start: 20241004
  2. QINLOCK [Suspect]
     Active Substance: RIPRETINIB
     Indication: Malignant connective tissue neoplasm
     Dosage: 150 MILLIGRAM, QD
     Route: 048
     Dates: start: 2024
  3. QINLOCK [Suspect]
     Active Substance: RIPRETINIB
     Indication: Soft tissue sarcoma
     Dosage: 150 MILLIGRAM, QD
     Route: 048
  4. MEGESTROL [Suspect]
     Active Substance: MEGESTROL
     Indication: Weight decreased

REACTIONS (17)
  - Frustration tolerance decreased [Unknown]
  - Weight increased [Unknown]
  - Skin exfoliation [Unknown]
  - Mastication disorder [Unknown]
  - Nasopharyngitis [Unknown]
  - Dyspepsia [Unknown]
  - Hyperkeratosis [Unknown]
  - Blood pressure abnormal [Unknown]
  - Blood glucose increased [Unknown]
  - Thyroid disorder [Unknown]
  - Blood cholesterol abnormal [Unknown]
  - Anxiety [Unknown]
  - Decreased appetite [Unknown]
  - Depression [Unknown]
  - Weight decreased [Unknown]
  - Fatigue [Unknown]
  - Product dose omission in error [Unknown]

NARRATIVE: CASE EVENT DATE: 20240101
